FAERS Safety Report 7892642-6 (Version None)
Quarter: 2011Q4

REPORT INFORMATION
  Report Type: 
  Country: None (occurrence: None)
  Receive Date: 20111102
  Receipt Date: 20111004
  Transmission Date: 20120403
  Serious: Yes (Hospitalization)
  Sender: FDA-Public Use
  Company Number: 2011PROUSA00627

PATIENT
  Age: 68 Year
  Sex: Male
  Weight: 88 kg

DRUGS (8)
  1. CRESTOR [Concomitant]
  2. LORTAB [Concomitant]
  3. PROVENGE [Suspect]
     Indication: PROSTATE CANCER METASTATIC
     Dosage: 250 ML, SINGLE, INTRAVENOUS
     Route: 042
     Dates: start: 20110825, end: 20110825
  4. LASIX [Concomitant]
  5. BENAZEPRIL HYDROCHLORIDE [Concomitant]
  6. POTASSIUM CHLORIDE [Concomitant]
  7. METFORMIN HCL [Concomitant]
  8. FLOMAX [Concomitant]

REACTIONS (2)
  - DEEP VEIN THROMBOSIS [None]
  - ACUTE MYOCARDIAL INFARCTION [None]
